FAERS Safety Report 6335072-0 (Version None)
Quarter: 2009Q3

REPORT INFORMATION
  Report Type: 
  Country: None (occurrence: None)
  Receive Date: 20090831
  Receipt Date: 20090825
  Transmission Date: 20100115
  Serious: Yes (Other)
  Sender: FDA-Public Use
  Company Number: A0805019A

PATIENT
  Sex: Female
  Weight: 15 kg

DRUGS (3)
  1. ADVAIR HFA [Suspect]
     Indication: ASTHMA
     Dosage: 2PUFF TWICE PER DAY
     Route: 055
     Dates: start: 20090301
  2. BUSONID [Concomitant]
     Dosage: 1PUFF TWICE PER DAY
     Dates: start: 20090501
  3. SINGULAIR [Concomitant]
     Dosage: 4MG PER DAY
     Route: 048
     Dates: start: 20090701

REACTIONS (4)
  - ASTHMATIC CRISIS [None]
  - BRONCHIOLITIS [None]
  - OVERDOSE [None]
  - RESPIRATORY SYNCYTIAL VIRUS INFECTION [None]
